FAERS Safety Report 5843370-X (Version None)
Quarter: 2008Q3

REPORT INFORMATION
  Report Type: 
  Country: None (occurrence: None)
  Receive Date: 20080812
  Receipt Date: 20080812
  Transmission Date: 20090109
  Serious: Yes (Other)
  Sender: FDA-Public Use
  Company Number: None

PATIENT
  Age: 27 Year
  Sex: Female
  Weight: 95.2554 kg

DRUGS (2)
  1. SEASONIQUE [Suspect]
     Indication: CONTRACEPTION
     Dosage: AS RECOMMENDED DAILY
  2. ORTHO TRI-CYCLEN [Suspect]
     Dosage: AS RECOMMENDED DAILY, 4.5 YRS

REACTIONS (8)
  - ABDOMINAL PAIN UPPER [None]
  - DIARRHOEA [None]
  - GALLBLADDER DISORDER [None]
  - INJECTION SITE PAIN [None]
  - MUSCULOSKELETAL PAIN [None]
  - NAUSEA [None]
  - PYREXIA [None]
  - VOMITING [None]
